FAERS Safety Report 11090342 (Version 1)
Quarter: 2015Q2

REPORT INFORMATION
  Report Type: Spontaneous
  Country: None (occurrence: None)
  Receive Date: 20150504
  Receipt Date: 20150504
  Transmission Date: 20150821
  Serious: No
  Sender: FDA-Public Use
  Company Number: None

PATIENT
  Age: 42 Year
  Sex: Female
  Weight: 74.84 kg

DRUGS (3)
  1. CALTRATE [Concomitant]
     Active Substance: CALCIUM CARBONATE
  2. SULFAMETHOXAZOLE TMP [Suspect]
     Active Substance: SULFAMETHOXAZOLE\TRIMETHOPRIM
     Indication: URINARY TRACT INFECTION
     Dosage: 6 PILLS
     Route: 048
     Dates: start: 20150430, end: 20150503
  3. LYSINE [Concomitant]
     Active Substance: LYSINE

REACTIONS (3)
  - Headache [None]
  - Musculoskeletal stiffness [None]
  - Pain [None]

NARRATIVE: CASE EVENT DATE: 20150503
